FAERS Safety Report 5109694-9 (Version None)
Quarter: 2006Q3

REPORT INFORMATION
  Report Type: 
  Country: None (occurrence: None)
  Receive Date: 20060918
  Receipt Date: 20060809
  Transmission Date: 20061208
  Serious: Yes (Other)
  Sender: FDA-Public Use
  Company Number: 220010K06BRA

PATIENT
  Sex: Female

DRUGS (2)
  1. SAIZEN [Suspect]
     Dosage: 0.85 IU, 1 IN 1 DAYS
     Dates: start: 20050420, end: 20060728
  2. SAIZEN [Suspect]

REACTIONS (1)
  - CONVULSION [None]
